FAERS Safety Report 11568389 (Version 1)
Quarter: 2015Q3

REPORT INFORMATION
  Report Type: Spontaneous
  Country: US (occurrence: None)
  Receive Date: 20150925
  Receipt Date: 20150925
  Transmission Date: 20151125
  Serious: Yes (Hospitalization)
  Sender: FDA-Public Use
  Company Number: US-ZYDUS-009031

PATIENT
  Age: 17 Year
  Sex: Female

DRUGS (1)
  1. METFORMIN [Suspect]
     Active Substance: METFORMIN HYDROCHLORIDE

REACTIONS (8)
  - Nausea [None]
  - Acute kidney injury [None]
  - Suicide attempt [None]
  - Body temperature increased [None]
  - Intentional overdose [None]
  - Lactic acidosis [None]
  - Diarrhoea [None]
  - Vomiting [None]
